FAERS Safety Report 10089658 (Version 1)
Quarter: 2014Q2

REPORT INFORMATION
  Report Type: Spontaneous
  Country: US (occurrence: None)
  Receive Date: 20140418
  Receipt Date: 20140418
  Transmission Date: 20141212
  Serious: No
  Sender: FDA-Public Use
  Company Number: None

PATIENT
  Age: 77 Year
  Sex: Female

DRUGS (2)
  1. HYDROCHLOROTHIAZIDE\LOSARTAN [Suspect]
     Route: 048
  2. VERAPAMIL ER [Suspect]
     Route: 048

REACTIONS (4)
  - Drug dispensing error [None]
  - Wrong drug administered [None]
  - Adverse drug reaction [None]
  - Product physical issue [None]
